FAERS Safety Report 15556782 (Version 1)
Quarter: 2018Q4

REPORT INFORMATION
  Report Type: Spontaneous
  Country: US (occurrence: US)
  Receive Date: 20181026
  Receipt Date: 20181026
  Transmission Date: 20190205
  Serious: Yes (Other)
  Sender: FDA-Public Use
  Company Number: US-ASTRAZENECA-2018SF38858

PATIENT
  Age: 23743 Day
  Sex: Male
  Weight: 108.5 kg

DRUGS (2)
  1. IMFINZI [Suspect]
     Active Substance: DURVALUMAB
     Indication: SQUAMOUS CELL CARCINOMA OF LUNG
     Dosage: ONCE/SINGLE ADMINISTRATION
     Route: 042
     Dates: start: 20181018
  2. IMFINZI [Suspect]
     Active Substance: DURVALUMAB
     Indication: SQUAMOUS CELL CARCINOMA OF LUNG
     Dosage: 1120.0MG ONCE/SINGLE ADMINISTRATION
     Route: 042
     Dates: start: 20181004

REACTIONS (9)
  - Lung disorder [Unknown]
  - Radiation pneumonitis [Unknown]
  - Thirst [Recovered/Resolved]
  - Lymphadenopathy [Unknown]
  - Feeling cold [Recovered/Resolved]
  - Chills [Recovered/Resolved]
  - Oxygen saturation decreased [Unknown]
  - Pleural effusion [Unknown]
  - Pneumonitis [Unknown]

NARRATIVE: CASE EVENT DATE: 20181004
